FAERS Safety Report 24427601 (Version 5)
Quarter: 2025Q3

REPORT INFORMATION
  Report Type: Report from Study
  Country: EU (occurrence: EU)
  Receive Date: 20241011
  Receipt Date: 20250710
  Transmission Date: 20251021
  Serious: Yes (Hospitalization)
  Sender: PFIZER
  Company Number: EU-PFIZER INC-PV202400124821

PATIENT
  Age: 16 Year
  Sex: Female
  Weight: 54.7 kg

DRUGS (13)
  1. FLUCONAZOLE [Suspect]
     Active Substance: FLUCONAZOLE
     Indication: Candida infection
     Dates: start: 20220829, end: 202209
  2. ALPELISIB [Suspect]
     Active Substance: ALPELISIB
     Indication: PIK3CA related overgrowth spectrum
     Dosage: 100 MG, 1X/DAY
     Route: 048
     Dates: start: 20200310
  3. HYDROCORTISONE [Suspect]
     Active Substance: HYDROCORTISONE
     Indication: Prophylaxis
     Dates: start: 20220707, end: 20240529
  4. FERROUS SULFATE [Concomitant]
     Active Substance: FERROUS SULFATE
     Dates: start: 201401, end: 202305
  5. TINZAPARIN SODIUM [Concomitant]
     Active Substance: TINZAPARIN SODIUM
     Dates: start: 20220624, end: 20250115
  6. PENICILLIN V [Concomitant]
     Active Substance: PENICILLIN V
     Indication: Infection prophylaxis
     Dates: start: 20220707, end: 20221129
  7. OXYCODONE [Concomitant]
     Active Substance: OXYCODONE
     Dates: start: 20220707, end: 20230213
  8. PREGABALIN [Concomitant]
     Active Substance: PREGABALIN
     Dates: start: 202209, end: 20220925
  9. MORPHINE [Concomitant]
     Active Substance: MORPHINE
     Indication: Vomiting
     Dates: start: 20220907, end: 20220923
  10. AMPHOTERICIN B [Concomitant]
     Active Substance: AMPHOTERICIN B
     Dates: start: 202209, end: 202209
  11. ACETAMINOPHEN [Concomitant]
     Active Substance: ACETAMINOPHEN
     Dates: start: 202209, end: 202209
  12. KETOCONAZOLE EG [Concomitant]
     Dates: start: 20220829, end: 202209
  13. ONDANSETRON [Concomitant]
     Active Substance: ONDANSETRON
     Dates: start: 20220917, end: 20220917

REACTIONS (3)
  - Vomiting [Recovered/Resolved]
  - COVID-19 [Recovered/Resolved]
  - Vomiting [Recovered/Resolved]

NARRATIVE: CASE EVENT DATE: 20220830
